FAERS Safety Report 6641755-5 (Version None)
Quarter: 2010Q1

REPORT INFORMATION
  Report Type: 
  Country: None (occurrence: None)
  Receive Date: 20100319
  Receipt Date: 20100317
  Transmission Date: 20100710
  Serious: Yes (Death, Hospitalization, Other)
  Sender: FDA-Public Use
  Company Number: US-ASTRAZENECA-2009UW13015

PATIENT
  Age: 30 Year
  Sex: Male
  Weight: 154.2 kg

DRUGS (27)
  1. SEROQUEL [Suspect]
     Indication: BIPOLAR DISORDER
     Route: 048
     Dates: start: 20000101, end: 20090213
  2. SEROQUEL [Suspect]
     Indication: INSOMNIA
     Route: 048
     Dates: start: 20000101, end: 20090213
  3. SEROQUEL [Suspect]
     Indication: IMPULSIVE BEHAVIOUR
     Route: 048
     Dates: start: 20000101, end: 20090213
  4. SEROQUEL [Suspect]
     Route: 048
     Dates: start: 20020101, end: 20090101
  5. SEROQUEL [Suspect]
     Route: 048
     Dates: start: 20020101, end: 20090101
  6. SEROQUEL [Suspect]
     Route: 048
     Dates: start: 20020101, end: 20090101
  7. GEODON [Concomitant]
     Dates: start: 20090101
  8. HALDOL [Concomitant]
     Dates: start: 19950101, end: 20000101
  9. HALDOL [Concomitant]
     Dates: start: 20080101
  10. RISPERDAL [Concomitant]
     Indication: BIPOLAR DISORDER
     Dates: start: 20010101
  11. RISPERDAL [Concomitant]
     Indication: IMPULSIVE BEHAVIOUR
     Dates: start: 20010101
  12. RISPERDAL [Concomitant]
     Indication: INSOMNIA
     Dates: start: 20010101
  13. RISPERDAL [Concomitant]
     Dates: start: 20020101
  14. RISPERDAL [Concomitant]
     Dates: start: 20020101
  15. RISPERDAL [Concomitant]
     Dates: start: 20020101
  16. THORAZINE [Concomitant]
     Dates: start: 19950101, end: 20000101
  17. TRILAFON [Concomitant]
  18. ZYPREXA [Concomitant]
     Indication: BIPOLAR DISORDER
     Dates: start: 20010101
  19. ZYPREXA [Concomitant]
     Indication: IMPULSIVE BEHAVIOUR
     Dates: start: 20010101
  20. ZYPREXA [Concomitant]
     Indication: INSOMNIA
     Dates: start: 20010101
  21. ZYPREXA [Concomitant]
     Dates: start: 20020101
  22. ZYPREXA [Concomitant]
     Dates: start: 20020101
  23. ZYPREXA [Concomitant]
     Dates: start: 20020101
  24. LIPITOR [Concomitant]
     Dates: start: 20050101
  25. TRIAVIL [Concomitant]
  26. CELEXA [Concomitant]
     Dates: start: 20060101, end: 20080101
  27. WELLBUTRIN [Concomitant]

REACTIONS (14)
  - BLOOD TRIGLYCERIDES INCREASED [None]
  - DIABETES MELLITUS [None]
  - DIABETIC COMA [None]
  - DIABETIC KETOACIDOSIS [None]
  - DIABETIC NEUROPATHY [None]
  - GLYCOSURIA [None]
  - HYPERGLYCAEMIA [None]
  - HYPERLIPIDAEMIA [None]
  - LUNG DISORDER [None]
  - OBESITY [None]
  - PANCREATITIS [None]
  - PANCREATITIS NECROTISING [None]
  - TYPE 2 DIABETES MELLITUS [None]
  - WOUND [None]
